FAERS Safety Report 13100443 (Version 3)
Quarter: 2017Q3

REPORT INFORMATION
  Report Type: Spontaneous
  Country: US (occurrence: US)
  Receive Date: 20170110
  Receipt Date: 20170703
  Transmission Date: 20171127
  Serious: Yes (Life-Threatening, Hospitalization)
  Sender: FDA-Public Use
  Company Number: US-UNITED THERAPEUTICS-UNT-2017-000079

PATIENT
  Sex: Female

DRUGS (16)
  1. REMODULIN [Suspect]
     Active Substance: TREPROSTINIL
     Indication: PULMONARY ARTERIAL HYPERTENSION
     Dosage: 0.066 ML/HR, CONTINUING
     Route: 058
     Dates: start: 20160809
  2. LASIX [Suspect]
     Active Substance: FUROSEMIDE
     Indication: PRODUCT USED FOR UNKNOWN INDICATION
     Dosage: 1ML VIA GASTROSTOMY TUBE ONCE A DAY
     Route: 048
  3. ALBUTEROL                          /00139501/ [Concomitant]
     Active Substance: ALBUTEROL
     Indication: WHEEZING
     Dosage: 3 ML NEBULIZED,Q4H AS NEEDED
  4. TRACLEER [Suspect]
     Active Substance: BOSENTAN
     Dosage: 0.5 VIA GASTROSTOMY TUBE TWO TIMES A DAY
     Route: 048
  5. FAMOTIDINE. [Concomitant]
     Active Substance: FAMOTIDINE
     Indication: PRODUCT USED FOR UNKNOWN INDICATION
     Dosage: 0.8 ML (40 MG PER 5 ML) VIA GASTROSTOMY TUBE TWICE A DAY
  6. SILDENAFIL. [Concomitant]
     Active Substance: SILDENAFIL
     Dosage: 17 MG, TID
     Route: 048
  7. ATIVAN [Concomitant]
     Active Substance: LORAZEPAM
     Indication: AGITATION
     Dosage: 0.5 MG, Q4H, PRN
  8. MULTIVITAMINES WITH IRON           /02170101/ [Concomitant]
     Indication: PRODUCT USED FOR UNKNOWN INDICATION
     Dosage: 1ML VIA GASTROSTOMY TUBE ONCE A DAY
  9. REMODULIN [Suspect]
     Active Substance: TREPROSTINIL
     Dosage: 0.085 ?G/KG, CONTINUING
     Route: 058
  10. ALBUTEROL                          /00139501/ [Concomitant]
     Active Substance: ALBUTEROL
     Indication: DYSPNOEA
  11. SILDENAFIL. [Concomitant]
     Active Substance: SILDENAFIL
     Indication: PRODUCT USED FOR UNKNOWN INDICATION
     Dosage: 1.7 ML (10 MG PER 1 ML) VIA GASTROSTOMY TUBE THREE TIMES A DAY
     Route: 048
  12. TRACLEER [Suspect]
     Active Substance: BOSENTAN
     Indication: PRODUCT USED FOR UNKNOWN INDICATION
     Dosage: 31.25 MG, BID
     Route: 048
  13. HYDROCORTISONE. [Concomitant]
     Active Substance: HYDROCORTISONE
     Indication: RASH
     Dosage: APPILICATION ON SKIN THREE TIMES A DAY AS NEEDED
  14. REMODULIN [Suspect]
     Active Substance: TREPROSTINIL
     Dosage: 0.100 ?G/KG, CONTINUING
     Route: 058
  15. BUDESONIDE. [Concomitant]
     Active Substance: BUDESONIDE
     Indication: PRODUCT USED FOR UNKNOWN INDICATION
     Dosage: 0.2 MG PER 2ML NUBLIZED TWO TIMES A DAY
  16. POTASSIUM CHLORIDE. [Concomitant]
     Active Substance: POTASSIUM CHLORIDE
     Indication: PRODUCT USED FOR UNKNOWN INDICATION
     Dosage: 5

REACTIONS (10)
  - Drug dose omission [Unknown]
  - Agitation [Unknown]
  - Respiratory distress [Unknown]
  - Pulmonary hypertension [Unknown]
  - Acinetobacter infection [Unknown]
  - Mechanical ventilation [Unknown]
  - Pneumonia bacterial [Unknown]
  - Dehydration [Unknown]
  - Stenotrophomonas infection [Unknown]
  - Haemodynamic instability [Unknown]

NARRATIVE: CASE EVENT DATE: 20161224
